FAERS Safety Report 6244409-2 (Version None)
Quarter: 2009Q2

REPORT INFORMATION
  Report Type: 
  Country: None (occurrence: None)
  Receive Date: 20090625
  Receipt Date: 20090618
  Transmission Date: 20091009
  Serious: No
  Sender: FDA-Public Use
  Company Number: US-JNJFOC-20090606904

PATIENT
  Sex: Female

DRUGS (4)
  1. DURAGESIC-100 [Suspect]
     Indication: DRUG USE FOR UNKNOWN INDICATION
     Route: 062
  2. ZOLOFT [Concomitant]
     Indication: PERSONALITY DISORDER
  3. TRAZODONE HCL [Concomitant]
     Indication: PERSONALITY DISORDER
  4. KLONOPIN [Concomitant]
     Indication: PERSONALITY DISORDER

REACTIONS (3)
  - APPLICATION SITE VESICLES [None]
  - DRUG PRESCRIBING ERROR [None]
  - RASH [None]
